FAERS Safety Report 19789109 (Version 1)
Quarter: 2021Q3

REPORT INFORMATION
  Report Type: Spontaneous
  Country: JP (occurrence: JP)
  Receive Date: 20210904
  Receipt Date: 20210904
  Transmission Date: 20211014
  Serious: Yes (Death, Other)
  Sender: FDA-Public Use
  Company Number: JP-HQ SPECIALTY-JP-2021INT000153

PATIENT
  Age: 48 Year
  Sex: Male

DRUGS (24)
  1. CISPLATIN. [Suspect]
     Active Substance: CISPLATIN
     Dosage: DOSE REDUCED TO 90%, DELAYED BY 1 WEEK (CYCLE 4 BEP)
     Route: 065
  2. BLEOMYCIN [Suspect]
     Active Substance: BLEOMYCIN SULFATE
     Dosage: UNK (CYCLE 3 BEP)
     Route: 065
  3. CISPLATIN. [Suspect]
     Active Substance: CISPLATIN
     Dosage: DOSE REDUCED TO 90% (CYCLE 3 BEP)
     Route: 065
  4. PACLITAXEL. [Suspect]
     Active Substance: PACLITAXEL
     Dosage: UNK (CYCLE 4 TIP)
     Route: 065
  5. IFOSFAMIDE. [Suspect]
     Active Substance: IFOSFAMIDE
     Dosage: UNK (CYCLE 3 TIP)
     Route: 065
  6. ETOPOSIDE. [Suspect]
     Active Substance: ETOPOSIDE
     Indication: TESTICULAR SEMINOMA (PURE)
     Dosage: UNK (CYCLE 1 BEP)
     Route: 065
  7. BLEOMYCIN [Suspect]
     Active Substance: BLEOMYCIN SULFATE
     Indication: TESTICULAR SEMINOMA (PURE)
     Dosage: UNK (CYCLE 1 BEP)
     Route: 065
  8. BLEOMYCIN [Suspect]
     Active Substance: BLEOMYCIN SULFATE
     Dosage: UNK (CYCLE 2 BEP)
     Route: 065
  9. CISPLATIN. [Suspect]
     Active Substance: CISPLATIN
     Indication: TESTICULAR SEMINOMA (PURE)
     Dosage: DOSE REDUCED TO 90% (CYCLE 1 BEP)
     Route: 065
  10. CISPLATIN. [Suspect]
     Active Substance: CISPLATIN
     Dosage: UNK (CYCLE 3 TIP)
     Route: 065
  11. ETOPOSIDE. [Suspect]
     Active Substance: ETOPOSIDE
     Dosage: UNK (CYCLE 3 BEP)
     Route: 065
  12. IFOSFAMIDE. [Suspect]
     Active Substance: IFOSFAMIDE
     Dosage: UNK (CYCLE 4 TIP)
     Route: 065
  13. PACLITAXEL. [Suspect]
     Active Substance: PACLITAXEL
     Dosage: UNK (CYCLE 3 TIP)
     Route: 065
  14. CISPLATIN. [Suspect]
     Active Substance: CISPLATIN
     Dosage: UNK (CYCLE 2 TIP)
     Route: 065
  15. CISPLATIN. [Suspect]
     Active Substance: CISPLATIN
     Dosage: UNK (CYCLE 4 TIP)
     Route: 065
  16. IFOSFAMIDE. [Suspect]
     Active Substance: IFOSFAMIDE
     Dosage: UNK (CYCLE 2 TIP)
     Route: 065
  17. CISPLATIN. [Suspect]
     Active Substance: CISPLATIN
     Dosage: DOSE REDUCED TO 90% (CYCLE 2 BEP)
     Route: 065
  18. ETOPOSIDE. [Suspect]
     Active Substance: ETOPOSIDE
     Dosage: UNK, DELAYED BY 1 WEEK (CYCLE 4 BEP)
  19. IFOSFAMIDE. [Suspect]
     Active Substance: IFOSFAMIDE
     Indication: TESTICULAR SEMINOMA (PURE)
     Dosage: UNK (CYCLE 1 TIP)
     Route: 065
  20. CISPLATIN. [Suspect]
     Active Substance: CISPLATIN
     Dosage: UNK (CYCLE 1 TIP)
     Route: 065
  21. ETOPOSIDE. [Suspect]
     Active Substance: ETOPOSIDE
     Dosage: UNK (CYCLE 2 BEP)
     Route: 065
  22. BLEOMYCIN [Suspect]
     Active Substance: BLEOMYCIN SULFATE
     Dosage: UNK, DELAYED BY 1 WEEK (CYCLE 4 BEP)
     Route: 065
  23. PACLITAXEL. [Suspect]
     Active Substance: PACLITAXEL
     Indication: TESTICULAR SEMINOMA (PURE)
     Dosage: UNK (CYCLE 1 TIP)
     Route: 065
  24. PACLITAXEL. [Suspect]
     Active Substance: PACLITAXEL
     Dosage: UNK (CYCLE 2 TIP)
     Route: 065

REACTIONS (6)
  - Multiple organ dysfunction syndrome [Fatal]
  - Sepsis [Fatal]
  - Disseminated intravascular coagulation [Fatal]
  - Septic shock [Fatal]
  - Haemorrhage [Fatal]
  - Aortoenteric fistula [Fatal]
